FAERS Safety Report 4467934-3 (Version None)
Quarter: 2004Q4

REPORT INFORMATION
  Report Type: 
  Country: None (occurrence: None)
  Receive Date: 20041004
  Receipt Date: 20040922
  Transmission Date: 20050328
  Serious: Yes (Other)
  Sender: FDA-Public Use
  Company Number: HQWYE118526MAY04

PATIENT
  Age: 75 Year
  Sex: Male

DRUGS (6)
  1. CORDARONE [Suspect]
     Indication: VENTRICULAR TACHYCARDIA
     Dosage: 200 MG 1X PER 1 DAY
     Route: 048
     Dates: start: 20040401, end: 20040430
  2. RIFUN (PANTOPRAZOLE) [Concomitant]
  3. METOPROLOL TARTRATE [Concomitant]
  4. FORMOTEROL (FORMOTEROL) [Concomitant]
  5. BUDESONIDE (BUDESONIDE) [Concomitant]
  6. THEOPHYLLINE [Concomitant]

REACTIONS (5)
  - ALANINE AMINOTRANSFERASE INCREASED [None]
  - ASPARTATE AMINOTRANSFERASE INCREASED [None]
  - CHOLESTASIS [None]
  - GAMMA-GLUTAMYLTRANSFERASE INCREASED [None]
  - HEPATIC FUNCTION ABNORMAL [None]
